FAERS Safety Report 10265195 (Version 1)
Quarter: 2014Q2

REPORT INFORMATION
  Report Type: Spontaneous
  Country: US (occurrence: US)
  Receive Date: 20140627
  Receipt Date: 20140627
  Transmission Date: 20141212
  Serious: No
  Sender: FDA-Public Use
  Company Number: US-ASTRAZENECA-2014SE44941

PATIENT
  Age: 71 Year
  Sex: Female
  Weight: 64.4 kg

DRUGS (7)
  1. SYMBICORT [Suspect]
     Indication: CHRONIC OBSTRUCTIVE PULMONARY DISEASE
     Dosage: 2 PUFFS BID
     Route: 055
     Dates: start: 2014
  2. LISINOPRIL [Suspect]
     Indication: HYPERTENSION
     Route: 048
     Dates: start: 2012
  3. SILDENAFIL [Concomitant]
     Indication: BLOOD PRESSURE INCREASED
     Route: 055
     Dates: start: 20140605
  4. PREDNISONE [Concomitant]
  5. LASIX [Concomitant]
     Dosage: ONE AND A HALF TABLE DAILY
  6. RANITIDINE [Concomitant]
     Indication: GASTROOESOPHAGEAL REFLUX DISEASE
  7. SPIRIVA [Concomitant]

REACTIONS (2)
  - Peripheral swelling [Unknown]
  - Peripheral swelling [Unknown]
